APPROVED DRUG PRODUCT: METHYLPHENIDATE HYDROCHLORIDE
Active Ingredient: METHYLPHENIDATE HYDROCHLORIDE
Strength: 27MG
Dosage Form/Route: TABLET, EXTENDED RELEASE;ORAL
Application: A205327 | Product #002 | TE Code: AB
Applicant: OSMOTICA PHARMACEUTICAL US LLC
Approved: Jul 28, 2017 | RLD: No | RS: No | Type: RX